FAERS Safety Report 22602879 (Version 1)
Quarter: 2023Q2

REPORT INFORMATION
  Report Type: Spontaneous
  Country: IN (occurrence: IN)
  Receive Date: 20230615
  Receipt Date: 20230615
  Transmission Date: 20230721
  Serious: Yes (Death, Other)
  Sender: FDA-Public Use
  Company Number: IN-NOVITIUMPHARMA-2023INNVP00934

PATIENT
  Age: 56 Year
  Sex: Male

DRUGS (1)
  1. DEXAMETHASONE [Suspect]
     Active Substance: DEXAMETHASONE
     Indication: COVID-19
     Route: 042

REACTIONS (2)
  - Rhinocerebral mucormycosis [Fatal]
  - Off label use [Unknown]
